FAERS Safety Report 18371205 (Version 16)
Quarter: 2023Q1

REPORT INFORMATION
  Report Type: Spontaneous
  Country: US (occurrence: US)
  Receive Date: 20201012
  Receipt Date: 20230222
  Transmission Date: 20230418
  Serious: Yes (Hospitalization, Other)
  Sender: FDA-Public Use
  Company Number: US-PFIZER INC-2020387981

PATIENT
  Age: 66 Year
  Sex: Male

DRUGS (3)
  1. EUCRISA [Suspect]
     Active Substance: CRISABOROLE
     Indication: Eczema
     Dosage: UNK, 2X/DAY (APPLY TO SKIN TWICE DAILY)
     Dates: start: 201806
  2. EUCRISA [Suspect]
     Active Substance: CRISABOROLE
     Dosage: UNK, AS NEEDED (APPLY ONCE ON BOTH HANDS TWICE DAILY FOR 4 WEEKS THEN STOP FOR 2 WEEKS)
  3. EUCRISA [Suspect]
     Active Substance: CRISABOROLE
     Dosage: REDUCED FROM TWICE A DAY TO NOW JUST A FRACTION FOR THE PAST SIX MONTHS

REACTIONS (10)
  - Back disorder [Unknown]
  - Thrombosis [Unknown]
  - Compression fracture [Unknown]
  - Spinal fracture [Unknown]
  - Expired product administered [Unknown]
  - Blood blister [Unknown]
  - Skin atrophy [Unknown]
  - Condition aggravated [Unknown]
  - Stress [Unknown]
  - Mental disorder [Unknown]
